FAERS Safety Report 12551395 (Version 1)
Quarter: 2016Q3

REPORT INFORMATION
  Report Type: Spontaneous
  Country: US (occurrence: US)
  Receive Date: 20160713
  Receipt Date: 20160713
  Transmission Date: 20161109
  Serious: Yes (Hospitalization)
  Sender: FDA-Public Use
  Company Number: US-ROCHE-1791177

PATIENT
  Sex: Female

DRUGS (13)
  1. PANTOPRAZOLE SODIUM. [Suspect]
     Active Substance: PANTOPRAZOLE SODIUM
     Indication: GASTRIC DISORDER
     Dosage: 1 PILL BY MOUTH PER DAY IN THE MORNING
     Route: 065
  2. SODIUM BICARBONATE. [Concomitant]
     Active Substance: SODIUM BICARBONATE
     Dosage: 650MG TWO TABLETS BY MOUTH THREE TIMES A DAY, HAD BEEN TAKING 5-6 YEARS.
     Route: 048
  3. CLOPIDOGREL [Concomitant]
     Active Substance: CLOPIDOGREL BISULFATE
     Dosage: HAS BEEN TAKING FOR TWO YEARS, 75MG ONE A DAY BY MOUTH.
     Route: 065
  4. ATENOLOL. [Concomitant]
     Active Substance: ATENOLOL
     Dosage: 50MG TAKE A FORTH A TABLET BY MOUTH WHEN NEEDED, HEART WAS SET AT 60 FOR 40 YEARS. HAD BEEN TAKING S
     Route: 065
  5. TYLENOL [Concomitant]
     Active Substance: ACETAMINOPHEN
  6. DIAZEPAM. [Suspect]
     Active Substance: DIAZEPAM
     Indication: HYPERTENSION
     Dosage: AS NEEDED BUT NOT EVERY DAY
     Route: 065
     Dates: start: 2015
  7. LEVOTHYROXINE. [Concomitant]
     Active Substance: LEVOTHYROXINE
     Dosage: ONCE A DAY BY MOUTH IN THE MORNING, HAD BEEN TAKING FOR OVER 10 YEARS. HER DOCTOR INCREASED HER DOSE
     Route: 065
  8. OXYCONTIN [Concomitant]
     Active Substance: OXYCODONE HYDROCHLORIDE
     Dosage: 7.5/325MG TAKE EVERY 4 HOURS AS NEEDED. DR SAID TO CUT ALL PILLS IN TWO
     Route: 065
  9. CLONIDINE. [Concomitant]
     Active Substance: CLONIDINE
     Indication: BLOOD PRESSURE MEASUREMENT
     Dosage: 0.2MG ONE AND A HALF TABLETS BY MOUTH THREE TIMES A DAY, SHE NEEDS 4, SHE TAKES 4. SHE CANNOT GET BY
     Route: 065
  10. ALLOPURINOL. [Concomitant]
     Active Substance: ALLOPURINOL
     Dosage: 100MG ONE EVERY MORNING BY MOUTH AND HAD BEEN TAKING SINCE LAST YEAR
     Route: 065
  11. ACIDOPHILUS [Concomitant]
     Active Substance: LACTOBACILLUS ACIDOPHILUS
  12. PROTONIX [Suspect]
     Active Substance: PANTOPRAZOLE SODIUM
     Indication: GASTRIC DISORDER
     Dosage: 1 PILL BY MOUTH PER DAY IN THE MORNING
     Route: 065
  13. GEMFIBROZIL. [Concomitant]
     Active Substance: GEMFIBROZIL
     Indication: BLOOD CHOLESTEROL
     Dosage: 600MG ONE MORNING IN THE MORNING AND ONE AT NIGHT, 30 MINUTES BEFORE SHE EATS, HAD BEEN TAKING SINCE
     Route: 065

REACTIONS (9)
  - Wrong technique in product usage process [Unknown]
  - Concussion [Unknown]
  - Blindness [Recovering/Resolving]
  - Neck surgery [Unknown]
  - Cerebrovascular accident [Unknown]
  - Asthenia [Unknown]
  - Fall [Unknown]
  - Myocardial infarction [Unknown]
  - Drug dose omission [Unknown]
